FAERS Safety Report 4433235-2 (Version None)
Quarter: 2004Q3

REPORT INFORMATION
  Report Type: 
  Country: None (occurrence: None)
  Receive Date: 20040824
  Receipt Date: 20040816
  Transmission Date: 20050211
  Serious: Yes (Other)
  Sender: FDA-Public Use
  Company Number: 002422

PATIENT
  Age: 53 Year
  Sex: Female

DRUGS (4)
  1. MEDROXYPROGESTERONE ACETATE [Suspect]
     Dates: start: 19970505, end: 19980918
  2. ESTRADIOL [Suspect]
     Dates: start: 19961014, end: 19980918
  3. PREMPRO [Suspect]
     Dates: start: 19980918, end: 20010401
  4. PROVERA [Suspect]
     Dates: start: 19961014, end: 19970505

REACTIONS (1)
  - BREAST CANCER [None]
